FAERS Safety Report 21447407 (Version 11)
Quarter: 2024Q4

REPORT INFORMATION
  Report Type: Report from Study
  Country: CA (occurrence: CA)
  Receive Date: 20221012
  Receipt Date: 20241211
  Transmission Date: 20250115
  Serious: Yes (Hospitalization, Other)
  Sender: TAKEDA
  Company Number: CA-TAKEDA-2022TUS071642

PATIENT
  Age: 53 Year
  Sex: Male

DRUGS (8)
  1. VEDOLIZUMAB [Suspect]
     Active Substance: VEDOLIZUMAB
     Indication: Crohn^s disease
     Dosage: 300 MILLIGRAM
  2. VEDOLIZUMAB [Suspect]
     Active Substance: VEDOLIZUMAB
     Dosage: 300 MILLIGRAM, Q4WEEKS
     Dates: start: 20240409
  3. VEDOLIZUMAB [Suspect]
     Active Substance: VEDOLIZUMAB
     Dosage: 300 MILLIGRAM, Q4WEEKS
  4. VEDOLIZUMAB [Suspect]
     Active Substance: VEDOLIZUMAB
     Dosage: 300 MILLIGRAM
  5. Cortiment [Concomitant]
     Dosage: UNK
  6. ESCITALOPRAM [Concomitant]
     Active Substance: ESCITALOPRAM OXALATE
     Dosage: 10 MILLIGRAM
  7. QUETIAPINE [Concomitant]
     Active Substance: QUETIAPINE
     Dosage: 25 MILLIGRAM
  8. RISPERIDONE [Concomitant]
     Active Substance: RISPERIDONE
     Dosage: 0.25 MILLIGRAM

REACTIONS (14)
  - Intestinal obstruction [Recovered/Resolved]
  - Intestinal stenosis [Unknown]
  - Crohn^s disease [Unknown]
  - Frequent bowel movements [Unknown]
  - Defaecation urgency [Unknown]
  - Abdominal discomfort [Unknown]
  - Diarrhoea [Unknown]
  - Off label use [Unknown]
  - Malaise [Recovering/Resolving]
  - Asthenia [Recovering/Resolving]
  - Panic attack [Not Recovered/Not Resolved]
  - Arthralgia [Unknown]
  - Nausea [Unknown]
  - Fatigue [Recovering/Resolving]

NARRATIVE: CASE EVENT DATE: 20240409
